FAERS Safety Report 7504475-0 (Version None)
Quarter: 2011Q2

REPORT INFORMATION
  Report Type: 
  Country: None (occurrence: None)
  Receive Date: 20110525
  Receipt Date: 20110516
  Transmission Date: 20111010
  Serious: Yes (Death, Other)
  Sender: FDA-Public Use
  Company Number: HR-MILLENNIUM PHARMACEUTICALS, INC.-2010-03522

PATIENT

DRUGS (3)
  1. DEXAMETHASONE [Concomitant]
     Indication: PRODUCT USED FOR UNKNOWN INDICATION
  2. VELCADE [Suspect]
     Indication: MULTIPLE MYELOMA
     Dosage: 1.3 MG/M2, UNK
     Route: 042
     Dates: start: 20100608, end: 20100701
  3. VELCADE [Suspect]
     Dosage: 1.3 MG/M2, UNK
     Route: 042

REACTIONS (5)
  - SEPSIS [None]
  - CARDIAC FAILURE [None]
  - DISEASE PROGRESSION [None]
  - VIRAL INFECTION [None]
  - ORAL CANDIDIASIS [None]
